FAERS Safety Report 5123446-5 (Version None)
Quarter: 2006Q4

REPORT INFORMATION
  Report Type: 
  Country: None (occurrence: None)
  Receive Date: 20061005
  Receipt Date: 20060922
  Transmission Date: 20070319
  Serious: Yes (Hospitalization, Other)
  Sender: FDA-Public Use
  Company Number: 2006112617

PATIENT
  Age: 71 Year
  Sex: Male

DRUGS (1)
  1. PREDNISOLONE [Suspect]
     Dosage: 60 MG (60 MG, 1 IN 1 D), ORAL
     Route: 048

REACTIONS (4)
  - CONDITION AGGRAVATED [None]
  - DIABETIC NEUROPATHY [None]
  - MYASTHENIA GRAVIS [None]
  - OPHTHALMOPLEGIA [None]
